FAERS Safety Report 5974082-X (Version None)
Quarter: 2008Q4

REPORT INFORMATION
  Report Type: 
  Country: None (occurrence: None)
  Receive Date: 20081201
  Receipt Date: 20081122
  Transmission Date: 20090506
  Serious: Yes (Hospitalization, Other)
  Sender: FDA-Public Use
  Company Number: US-AMGEN-US320438

PATIENT
  Sex: Male

DRUGS (7)
  1. NPLATE [Suspect]
     Indication: IDIOPATHIC THROMBOCYTOPENIC PURPURA
     Route: 058
     Dates: start: 20081112
  2. IMMUNOSUPPRESSANTS [Concomitant]
     Route: 065
  3. UNSPECIFIED ANTIDIABETIC AGENT [Concomitant]
     Route: 065
  4. UNSPECIFIED ANTIHYPERTENSIVE AGENT [Concomitant]
     Route: 065
  5. WINRHO [Concomitant]
     Route: 065
  6. IMMUNE GLOBULIN NOS [Concomitant]
     Route: 065
  7. UNSPECIFIED STEROIDS [Concomitant]
     Route: 065

REACTIONS (8)
  - ABDOMINAL PAIN [None]
  - ALANINE AMINOTRANSFERASE INCREASED [None]
  - ASPARTATE AMINOTRANSFERASE INCREASED [None]
  - BACK PAIN [None]
  - BLOOD ALKALINE PHOSPHATASE INCREASED [None]
  - BLOOD BILIRUBIN INCREASED [None]
  - PAIN IN EXTREMITY [None]
  - PLATELET COUNT DECREASED [None]
